FAERS Safety Report 14482948 (Version 4)
Quarter: 2018Q1

REPORT INFORMATION
  Report Type: Report from Study
  Country: US (occurrence: US)
  Receive Date: 20180203
  Receipt Date: 20180321
  Transmission Date: 20180509
  Serious: Yes (Hospitalization, Other)
  Sender: FDA-Public Use
  Company Number: US-BRISTOL-MYERS SQUIBB COMPANY-BMS-2018-008341

PATIENT
  Age: 59 Year
  Sex: Male
  Weight: 73 kg

DRUGS (3)
  1. NIVOLUMAB [Suspect]
     Active Substance: NIVOLUMAB
     Indication: ADENOCARCINOMA
     Dosage: 658.8 MG, UNK
     Route: 065
     Dates: start: 20171004, end: 20171101
  2. ENTINOSTAT [Suspect]
     Active Substance: ENTINOSTAT
     Indication: ADENOCARCINOMA
     Dosage: 9 MG, UNK
     Route: 065
     Dates: start: 20170628, end: 20171101
  3. IPILIMUMAB [Suspect]
     Active Substance: IPILIMUMAB
     Indication: ADENOCARCINOMA
     Dosage: 73.2 MG, UNK
     Route: 065
     Dates: start: 20171004, end: 20171004

REACTIONS (3)
  - Myasthenia gravis [Not Recovered/Not Resolved]
  - Vision blurred [Not Recovered/Not Resolved]
  - Pyrexia [Recovered/Resolved]

NARRATIVE: CASE EVENT DATE: 20171221
